FAERS Safety Report 23421771 (Version 2)
Quarter: 2025Q2

REPORT INFORMATION
  Report Type: Spontaneous
  Country: FR (occurrence: FR)
  Receive Date: 20240119
  Receipt Date: 20250505
  Transmission Date: 20250716
  Serious: Yes (Other)
  Sender: MYLAN
  Company Number: FR-BIOCON-BBL2023001934

PATIENT

DRUGS (24)
  1. LEUCOVORIN [Suspect]
     Active Substance: LEUCOVORIN\LEUCOVORIN CALCIUM
     Indication: Bile duct cancer
     Dosage: 200 MILLIGRAM/SQ. METER, BIWEEKLY (OVER 120 MIN)
  2. LEUCOVORIN [Suspect]
     Active Substance: LEUCOVORIN\LEUCOVORIN CALCIUM
     Dosage: 200 MILLIGRAM/SQ. METER, BIWEEKLY (OVER 120 MIN)
     Route: 042
  3. LEUCOVORIN [Suspect]
     Active Substance: LEUCOVORIN\LEUCOVORIN CALCIUM
     Dosage: 200 MILLIGRAM/SQ. METER, BIWEEKLY (OVER 120 MIN)
     Route: 042
  4. LEUCOVORIN [Suspect]
     Active Substance: LEUCOVORIN\LEUCOVORIN CALCIUM
     Dosage: 200 MILLIGRAM/SQ. METER, BIWEEKLY (OVER 120 MIN)
  5. FLUOROURACIL [Suspect]
     Active Substance: FLUOROURACIL
     Indication: Bile duct cancer
     Dosage: 40 MILLIGRAM/KILOGRAM, BIWEEKLY
  6. FLUOROURACIL [Suspect]
     Active Substance: FLUOROURACIL
     Dosage: 40 MILLIGRAM/KILOGRAM, BIWEEKLY
     Route: 042
  7. FLUOROURACIL [Suspect]
     Active Substance: FLUOROURACIL
     Dosage: 40 MILLIGRAM/KILOGRAM, BIWEEKLY
     Route: 042
  8. FLUOROURACIL [Suspect]
     Active Substance: FLUOROURACIL
     Dosage: 40 MILLIGRAM/KILOGRAM, BIWEEKLY
  9. FLUOROURACIL [Suspect]
     Active Substance: FLUOROURACIL
  10. FLUOROURACIL [Suspect]
     Active Substance: FLUOROURACIL
     Route: 042
  11. FLUOROURACIL [Suspect]
     Active Substance: FLUOROURACIL
  12. FLUOROURACIL [Suspect]
     Active Substance: FLUOROURACIL
     Route: 042
  13. FLUOROURACIL [Suspect]
     Active Substance: FLUOROURACIL
     Dosage: 400 MILLIGRAM/SQ. METER, BIWEEKLY
     Route: 042
  14. FLUOROURACIL [Suspect]
     Active Substance: FLUOROURACIL
     Dosage: 400 MILLIGRAM/SQ. METER, BIWEEKLY
     Route: 042
  15. FLUOROURACIL [Suspect]
     Active Substance: FLUOROURACIL
     Dosage: 400 MILLIGRAM/SQ. METER, BIWEEKLY
  16. FLUOROURACIL [Suspect]
     Active Substance: FLUOROURACIL
     Dosage: 400 MILLIGRAM/SQ. METER, BIWEEKLY
  17. IRINOTECAN [Suspect]
     Active Substance: IRINOTECAN
     Indication: Bile duct cancer
     Dosage: 180 MILLIGRAM/SQ. METER, BIWEEKLY (OVER 90 MIN)
  18. IRINOTECAN [Suspect]
     Active Substance: IRINOTECAN
     Dosage: 180 MILLIGRAM/SQ. METER, BIWEEKLY (OVER 90 MIN)
     Route: 042
  19. IRINOTECAN [Suspect]
     Active Substance: IRINOTECAN
     Dosage: 180 MILLIGRAM/SQ. METER, BIWEEKLY (OVER 90 MIN)
     Route: 042
  20. IRINOTECAN [Suspect]
     Active Substance: IRINOTECAN
     Dosage: 180 MILLIGRAM/SQ. METER, BIWEEKLY (OVER 90 MIN)
  21. BEVACIZUMAB [Suspect]
     Active Substance: BEVACIZUMAB
     Indication: Bile duct cancer
     Dosage: 5 MILLIGRAM/KILOGRAM, BIWEEKLY (OVER 90 MIN)
  22. BEVACIZUMAB [Suspect]
     Active Substance: BEVACIZUMAB
     Dosage: 5 MILLIGRAM/KILOGRAM, BIWEEKLY (OVER 90 MIN)
     Route: 042
  23. BEVACIZUMAB [Suspect]
     Active Substance: BEVACIZUMAB
     Dosage: 5 MILLIGRAM/KILOGRAM, BIWEEKLY (OVER 90 MIN)
     Route: 042
  24. BEVACIZUMAB [Suspect]
     Active Substance: BEVACIZUMAB
     Dosage: 5 MILLIGRAM/KILOGRAM, BIWEEKLY (OVER 90 MIN)

REACTIONS (1)
  - Gastrointestinal haemorrhage [Unknown]
